FAERS Safety Report 5322996-6 (Version None)
Quarter: 2007Q1

REPORT INFORMATION
  Report Type: 
  Country: None (occurrence: None)
  Receive Date: 20070215
  Receipt Date: 20060926
  Transmission Date: 20070707
  Serious: No
  Sender: FDA-Public Use
  Company Number: 200615875BWH

PATIENT
  Age: 71 Year
  Sex: Female
  Weight: 57.1532 kg

DRUGS (6)
  1. NEXAVAR [Suspect]
     Indication: RENAL CELL CARCINOMA STAGE UNSPECIFIED
     Dosage: 200 MG, BID, ORAL
     Route: 048
     Dates: start: 20060914
  2. COREG [Concomitant]
  3. LISINOPRIL [Concomitant]
  4. SYNTHROID [Concomitant]
  5. COUMADIN [Concomitant]
  6. OXYGEN [Concomitant]

REACTIONS (7)
  - CONSTIPATION [None]
  - COUGH [None]
  - DYSPNOEA [None]
  - PAIN OF SKIN [None]
  - PRURITUS [None]
  - RASH [None]
  - SKIN HYPERTROPHY [None]
